FAERS Safety Report 6768881-4 (Version None)
Quarter: 2010Q2

REPORT INFORMATION
  Report Type: 
  Country: None (occurrence: None)
  Receive Date: 20100611
  Receipt Date: 20100527
  Transmission Date: 20101027
  Serious: Yes (Hospitalization)
  Sender: FDA-Public Use
  Company Number: TPA2010A03306

PATIENT
  Age: 60 Year
  Sex: Male

DRUGS (2)
  1. ADENURIC (FEBUXOSTAT) [Suspect]
     Indication: GOUT
     Dosage: 80 MG, 1 IN 1 D, ORAL
     Route: 048
  2. COLCHICINE (COLCHICINE) [Concomitant]

REACTIONS (1)
  - RHABDOMYOLYSIS [None]
